FAERS Safety Report 4847081-9 (Version None)
Quarter: 2005Q4

REPORT INFORMATION
  Report Type: 
  Country: None (occurrence: None)
  Receive Date: 20051207
  Receipt Date: 20051124
  Transmission Date: 20060501
  Serious: Yes (Other)
  Sender: FDA-Public Use
  Company Number: 2005GB02229

PATIENT
  Age: 55 Year
  Sex: Female

DRUGS (2)
  1. ACCOLATE [Suspect]
     Route: 048
  2. SERETIDE 500 DISKUS [Suspect]
     Route: 065

REACTIONS (1)
  - HYPERKALAEMIA [None]
